FAERS Safety Report 10418534 (Version 1)
Quarter: 2014Q3

REPORT INFORMATION
  Report Type: Spontaneous
  Country: US (occurrence: US)
  Receive Date: 20140829
  Receipt Date: 20140829
  Transmission Date: 20150326
  Serious: No
  Sender: FDA-Public Use
  Company Number: US-TARO-2013P1019348

PATIENT
  Age: 75 Year
  Sex: Female
  Weight: 58.97 kg

DRUGS (3)
  1. HYDROCORTISONE VAGINAL SUPPOSITORIES [Suspect]
     Active Substance: HYDROCORTISONE
     Dates: start: 20130910
  2. CLOBETASOL PROPIONATE OINTMENT USP 0.05% [Suspect]
     Active Substance: CLOBETASOL PROPIONATE
     Dates: start: 20130901
  3. PREMARIN VAGINAL [Suspect]
     Active Substance: ESTROGENS, CONJUGATED

REACTIONS (2)
  - Application site pain [Unknown]
  - Drug ineffective [Unknown]

NARRATIVE: CASE EVENT DATE: 201309
